FAERS Safety Report 23243611 (Version 1)
Quarter: 2023Q4

REPORT INFORMATION
  Report Type: Spontaneous
  Country: US (occurrence: US)
  Receive Date: 20231130
  Receipt Date: 20231130
  Transmission Date: 20240110
  Serious: Yes (Hospitalization)
  Sender: FDA-Public Use
  Company Number: US-STRIDES ARCOLAB LIMITED-2023SP012437

PATIENT
  Age: 14 Year
  Sex: Female

DRUGS (55)
  1. GABAPENTIN [Suspect]
     Active Substance: GABAPENTIN
     Indication: Bipolar I disorder
     Dosage: 800 MILLIGRAM, AT BED TIME
     Route: 065
  2. GABAPENTIN [Suspect]
     Active Substance: GABAPENTIN
     Dosage: 800 MILLIGRAM, BID (TITRATED TO 800MG TWICE A DAY)
     Route: 065
  3. GABAPENTIN [Suspect]
     Active Substance: GABAPENTIN
     Dosage: 800 MILLIGRAM, AT BED TIME (DECREASED)
     Route: 065
  4. GABAPENTIN [Suspect]
     Active Substance: GABAPENTIN
     Dosage: 800 MILLIGRAM, AT BED TIME
     Route: 065
  5. METFORMIN [Suspect]
     Active Substance: METFORMIN HYDROCHLORIDE
     Indication: Bipolar I disorder
     Dosage: 500 MILLIGRAM, BID
     Route: 065
  6. METFORMIN [Suspect]
     Active Substance: METFORMIN HYDROCHLORIDE
     Dosage: 500 MILLIGRAM, BID
     Route: 065
  7. METFORMIN [Suspect]
     Active Substance: METFORMIN HYDROCHLORIDE
     Dosage: 500 MILLIGRAM, BID
     Route: 065
  8. HYDROXYZINE HYDROCHLORIDE [Suspect]
     Active Substance: HYDROXYZINE HYDROCHLORIDE
     Indication: Bipolar I disorder
     Dosage: UNK
     Route: 065
  9. LORAZEPAM [Suspect]
     Active Substance: LORAZEPAM
     Indication: Bipolar I disorder
     Dosage: UNK
     Route: 048
  10. LORAZEPAM [Suspect]
     Active Substance: LORAZEPAM
     Indication: Catatonia
     Dosage: UNK, TAPERED
     Route: 065
  11. LORAZEPAM [Suspect]
     Active Substance: LORAZEPAM
     Dosage: UNK
     Route: 065
  12. LORAZEPAM [Suspect]
     Active Substance: LORAZEPAM
     Dosage: UNK
     Route: 048
  13. TOPIRAMATE [Suspect]
     Active Substance: TOPIRAMATE
     Indication: Affective disorder
     Dosage: UNK
     Route: 065
  14. TOPIRAMATE [Suspect]
     Active Substance: TOPIRAMATE
     Dosage: 50 MILLIGRAM, BID (TWICE A DAY )
     Route: 065
  15. TOPIRAMATE [Suspect]
     Active Substance: TOPIRAMATE
     Dosage: 50 MILLIGRAM
     Route: 065
  16. RISPERIDONE [Suspect]
     Active Substance: RISPERIDONE
     Indication: Bipolar I disorder
     Dosage: 0.25 MILLIGRAM, BID
     Route: 065
  17. RISPERIDONE [Suspect]
     Active Substance: RISPERIDONE
     Dosage: 3 MILLIGRAM
     Route: 065
  18. RISPERIDONE [Suspect]
     Active Substance: RISPERIDONE
     Dosage: 0.5 MILLIGRAM, QD (ONCE A DAY)
     Route: 065
  19. RISPERIDONE [Suspect]
     Active Substance: RISPERIDONE
     Dosage: 1 MILLIGRAM, AT BED TIME
     Route: 065
  20. RISPERIDONE [Suspect]
     Active Substance: RISPERIDONE
     Dosage: 3 MILLIGRAM, AT BED TIME
     Route: 065
  21. RISPERIDONE [Suspect]
     Active Substance: RISPERIDONE
     Dosage: 3 MILLIGRAM, AT BED TIME
     Route: 065
  22. RISPERIDONE [Suspect]
     Active Substance: RISPERIDONE
     Dosage: 2 MILLIGRAM (DECREASED)
     Route: 065
  23. RISPERIDONE [Suspect]
     Active Substance: RISPERIDONE
     Dosage: UNK (TAPPERED)
     Route: 065
  24. LITHIUM [Suspect]
     Active Substance: LITHIUM
     Indication: Bipolar I disorder
     Dosage: 900 MILLIGRAM, AT BED TIME (EXTENDED RELEASE AT BEDTIME)
     Route: 065
  25. LITHIUM [Suspect]
     Active Substance: LITHIUM
     Dosage: 450 MILLIGRAM, AT BED TIME (EXTENDED RELEASE AT BEDTIME) (DECREASED THE DOSE TO ONE TABLET INSTEAD O
     Route: 065
  26. LITHIUM [Suspect]
     Active Substance: LITHIUM
     Dosage: 900 MILLIGRAM, AT BED TIME (EXTENDED RELEASE AT BEDTIME)
     Route: 065
  27. LITHIUM [Suspect]
     Active Substance: LITHIUM
     Dosage: UNK, TAPERED
     Route: 065
  28. LITHIUM [Suspect]
     Active Substance: LITHIUM
     Dosage: 450 MILLIGRAM, AT BED TIME (EXTENDED RELEASE AT BEDTIME)
     Route: 065
  29. LITHIUM [Suspect]
     Active Substance: LITHIUM
     Dosage: 450 MILLIGRAM, AT BED TIME (EXTENDED RELEASE AT BEDTIME)
     Route: 065
  30. GUANFACINE [Suspect]
     Active Substance: GUANFACINE
     Indication: Bipolar I disorder
     Dosage: 1 MILLIGRAM, ONCE A DAY (EXTENDED RELEASE AT BEDTIME)
     Route: 065
  31. GUANFACINE [Suspect]
     Active Substance: GUANFACINE
     Dosage: 4 MILLIGRAM (EXTENDED RELEASE)
     Route: 065
  32. GUANFACINE [Suspect]
     Active Substance: GUANFACINE
     Dosage: 4 MILLIGRAM (TITRATED TO 4MG AT BEDTIME)
     Route: 065
  33. GUANFACINE [Suspect]
     Active Substance: GUANFACINE
     Dosage: 4 MILLIGRAM (EXTENDED RELEASE)
     Route: 065
  34. GUANFACINE [Suspect]
     Active Substance: GUANFACINE
     Dosage: UNK (TAPPERED)
     Route: 065
  35. SERTRALINE [Suspect]
     Active Substance: SERTRALINE HYDROCHLORIDE
     Indication: Bipolar I disorder
     Dosage: UNK
     Route: 065
  36. SERTRALINE [Suspect]
     Active Substance: SERTRALINE HYDROCHLORIDE
     Dosage: 200 MILLIGRAM, AT BED TIME (TITRATED TO 200MG)
     Route: 065
  37. LURASIDONE [Suspect]
     Active Substance: LURASIDONE
     Indication: Bipolar I disorder
     Dosage: 40 MILLIGRAM, AT BED TIME
     Route: 065
  38. ARIPIPRAZOLE [Suspect]
     Active Substance: ARIPIPRAZOLE
     Indication: Bipolar I disorder
     Dosage: 15 MILLIGRAM, QD (ONCE A DAY)
     Route: 065
  39. ARIPIPRAZOLE [Suspect]
     Active Substance: ARIPIPRAZOLE
     Dosage: 15 MILLIGRAM, AT BED TIME
     Route: 065
  40. CHLORPROMAZINE [Suspect]
     Active Substance: CHLORPROMAZINE
     Indication: Bipolar I disorder
     Dosage: UNK
     Route: 048
  41. CHLORPROMAZINE [Suspect]
     Active Substance: CHLORPROMAZINE
     Dosage: UNK
     Route: 030
  42. CLOMIPRAMINE [Concomitant]
     Active Substance: CLOMIPRAMINE
     Indication: Obsessive-compulsive disorder
     Dosage: 25 MILLIGRAM, AT BED TIME
     Route: 065
  43. CLOMIPRAMINE [Concomitant]
     Active Substance: CLOMIPRAMINE
     Dosage: 75 MILLIGRAM (CONCURRENTLY INCREASED FROM 25 TO 75MG)
     Route: 065
  44. CLOMIPRAMINE [Concomitant]
     Active Substance: CLOMIPRAMINE
     Dosage: 75 MILLIGRAM
     Route: 065
  45. CLOZAPINE [Concomitant]
     Active Substance: CLOZAPINE
     Indication: Bipolar I disorder
     Dosage: 25 MILLIGRAM (TITRATED BY 25MG INCREMENTS TO 100MG)
     Route: 065
  46. CLOZAPINE [Concomitant]
     Active Substance: CLOZAPINE
     Dosage: 100 MILLIGRAM
     Route: 065
  47. CLOZAPINE [Concomitant]
     Active Substance: CLOZAPINE
     Dosage: UNK (TAPPERED)
     Route: 065
  48. CLOZAPINE [Concomitant]
     Active Substance: CLOZAPINE
     Dosage: 100 MILLIGRAM
     Route: 065
  49. ESCITALOPRAM [Concomitant]
     Active Substance: ESCITALOPRAM OXALATE
     Indication: Bipolar I disorder
     Dosage: 10 MILLIGRAM, QD
     Route: 065
  50. VENLAFAXINE [Concomitant]
     Active Substance: VENLAFAXINE HYDROCHLORIDE
     Indication: Bipolar I disorder
     Dosage: UNK
     Route: 065
  51. VENLAFAXINE [Concomitant]
     Active Substance: VENLAFAXINE HYDROCHLORIDE
     Dosage: 112.5 MILLIGRAM, QD
     Route: 065
  52. LACTULOSE [Concomitant]
     Active Substance: LACTULOSE
     Indication: Constipation
     Dosage: 20 GRAM, QD (ONE TIME DAILY )
     Route: 065
  53. CLONAZEPAM [Concomitant]
     Active Substance: CLONAZEPAM
     Indication: Bipolar I disorder
     Dosage: 0.5 MILLIGRAM (AT BEDTIME)
     Route: 065
  54. BISACODYL [Concomitant]
     Active Substance: BISACODYL
     Indication: Constipation
     Dosage: UNK
     Route: 065
  55. SENNOSIDES [Concomitant]
     Active Substance: SENNOSIDES
     Indication: Constipation
     Dosage: UNK
     Route: 065

REACTIONS (2)
  - Drug ineffective [Unknown]
  - Off label use [Unknown]
